FAERS Safety Report 23989530 (Version 5)
Quarter: 2024Q4

REPORT INFORMATION
  Report Type: Spontaneous
  Country: US (occurrence: US)
  Receive Date: 20240619
  Receipt Date: 20241113
  Transmission Date: 20250115
  Serious: No
  Sender: PFIZER
  Company Number: US-PFIZER INC-202400192882

PATIENT
  Age: 14 Year
  Sex: Male

DRUGS (2)
  1. GENOTROPIN [Suspect]
     Active Substance: SOMATROPIN
     Dosage: 1.4 MG, ALTERNATE DAY(1.5MGS - 7 DAYS PER WEEK - ALTERNATE BETWEEN 1.4MGS AND 1.6MGS)
     Route: 058
  2. GENOTROPIN [Suspect]
     Active Substance: SOMATROPIN
     Dosage: 1.6 MG, ALTERNATE DAY (1.5MGS - 7 DAYS PER WEEK - ALTERNATE BETWEEN 1.4MGS AND 1.6MGS)
     Route: 058

REACTIONS (2)
  - Device deployment issue [Unknown]
  - Device leakage [Unknown]
